FAERS Safety Report 7147947-3 (Version None)
Quarter: 2010Q4

REPORT INFORMATION
  Report Type: 
  Country: None (occurrence: None)
  Receive Date: 20101209
  Receipt Date: 20101130
  Transmission Date: 20110411
  Serious: Yes (Other)
  Sender: FDA-Public Use
  Company Number: JP-JNJFOC-20100803339

PATIENT
  Sex: Male
  Weight: 65 kg

DRUGS (11)
  1. REMICADE [Suspect]
     Indication: BEHCET'S SYNDROME
  2. REMICADE [Suspect]
  3. REMICADE [Suspect]
  4. REMICADE [Suspect]
  5. PREDONINE [Suspect]
     Indication: BEHCET'S SYNDROME
     Route: 048
  6. PREDONINE [Suspect]
     Route: 048
  7. COLCHICINE [Concomitant]
     Indication: BEHCET'S SYNDROME
     Route: 048
  8. PREDNISOLONE [Concomitant]
     Indication: BEHCET'S SYNDROME
     Route: 048
  9. PREDNISOLONE [Concomitant]
     Route: 048
  10. ANTIHISTAMINES [Concomitant]
     Indication: PROPHYLAXIS
  11. ACETAMINOPHEN [Concomitant]
     Indication: PROPHYLAXIS

REACTIONS (2)
  - CATARACT [None]
  - PYREXIA [None]
